FAERS Safety Report 9242789 (Version 2)
Quarter: 2013Q2

REPORT INFORMATION
  Report Type: Spontaneous
  Country: US (occurrence: US)
  Receive Date: 20130419
  Receipt Date: 20130531
  Transmission Date: 20140414
  Serious: Yes (Death)
  Sender: FDA-Public Use
  Company Number: US-GILEAD-2013-0073739

PATIENT
  Age: 63 Year
  Sex: Female

DRUGS (2)
  1. LETAIRIS [Suspect]
     Indication: PULMONARY HYPERTENSION
     Dosage: 10 MG, QD
     Route: 048
     Dates: start: 20121205, end: 201303
  2. LETAIRIS [Suspect]
     Indication: RHEUMATOID ARTHRITIS

REACTIONS (2)
  - Sepsis [Fatal]
  - Dyspnoea [Unknown]
